FAERS Safety Report 20635001 (Version 1)
Quarter: 2022Q1

REPORT INFORMATION
  Report Type: Report from Study
  Country: AU (occurrence: AU)
  Receive Date: 20220325
  Receipt Date: 20220325
  Transmission Date: 20220424
  Serious: Yes (Hospitalization, Other)
  Sender: FDA-Public Use
  Company Number: AU-BRISTOL-MYERS SQUIBB COMPANY-BMS-2022-038791

PATIENT
  Age: 80 Year
  Weight: 68 kg

DRUGS (6)
  1. CARBOPLATIN [Suspect]
     Active Substance: CARBOPLATIN
     Indication: Product used for unknown indication
     Dosage: 7 CYCLE(S), EACH CYCLE IS EQUAL TO 3 WEEKS
     Route: 065
     Dates: start: 20210602
  2. CARBOPLATIN [Suspect]
     Active Substance: CARBOPLATIN
     Dosage: DAY 1
     Route: 065
     Dates: start: 20211027
  3. PACLITAXEL [Suspect]
     Active Substance: PACLITAXEL
     Indication: Product used for unknown indication
     Route: 065
     Dates: start: 20210602
  4. PACLITAXEL [Suspect]
     Active Substance: PACLITAXEL
     Dosage: DAY 1
     Route: 065
     Dates: start: 20211027
  5. PACLITAXEL [Suspect]
     Active Substance: PACLITAXEL
     Dosage: DAY 8
     Route: 065
     Dates: start: 20211103
  6. PACLITAXEL [Suspect]
     Active Substance: PACLITAXEL
     Dosage: DAY 15
     Route: 065
     Dates: start: 20211110

REACTIONS (2)
  - Vascular device infection [Recovered/Resolved]
  - Toxicity to various agents [Unknown]

NARRATIVE: CASE EVENT DATE: 20211102
